FAERS Safety Report 5334213-1 (Version None)
Quarter: 2007Q2

REPORT INFORMATION
  Report Type: 
  Country: None (occurrence: None)
  Receive Date: 20070525
  Receipt Date: 20060926
  Transmission Date: 20071010
  Serious: No
  Sender: FDA-Public Use
  Company Number: A0621384A

PATIENT
  Sex: Female

DRUGS (2)
  1. BACTROBAN [Suspect]
     Route: 061
     Dates: start: 20040901
  2. ABILIFY [Concomitant]

REACTIONS (2)
  - CONDITION AGGRAVATED [None]
  - INFECTION PARASITIC [None]
